FAERS Safety Report 9805234 (Version 2)
Quarter: 2014Q1

REPORT INFORMATION
  Report Type: Spontaneous
  Country: US (occurrence: None)
  Receive Date: 20140106
  Receipt Date: 20140214
  Transmission Date: 20141002
  Serious: Yes (Hospitalization, Other)
  Sender: FDA-Public Use
  Company Number: ADR-2014-00007

PATIENT
  Age: 59 Year
  Sex: Female

DRUGS (3)
  1. BACLOFEN [Suspect]
     Indication: PAIN
  2. DILAUDID [Suspect]
  3. BUPIVACAINE [Suspect]

REACTIONS (2)
  - Rib fracture [None]
  - Fall [None]
